FAERS Safety Report 26196626 (Version 1)
Quarter: 2025Q4

REPORT INFORMATION
  Report Type: Report from Study
  Country: CO (occurrence: CO)
  Receive Date: 20251224
  Receipt Date: 20251224
  Transmission Date: 20260117
  Serious: Yes (Death)
  Sender: ABBVIE
  Company Number: CO-JNJFOC-20251230824

PATIENT
  Age: 69 Year
  Sex: Female
  Weight: 47 kg

DRUGS (1)
  1. IMBRUVICA [Suspect]
     Active Substance: IBRUTINIB
     Indication: Chronic lymphocytic leukaemia
     Route: 048
     Dates: start: 20171101

REACTIONS (1)
  - Death [Fatal]
